FAERS Safety Report 6552501-8 (Version None)
Quarter: 2010Q1

REPORT INFORMATION
  Report Type: 
  Country: None (occurrence: None)
  Receive Date: 20100126
  Receipt Date: 20100115
  Transmission Date: 20100710
  Serious: Yes (Hospitalization)
  Sender: FDA-Public Use
  Company Number: SE-GENENTECH-297040

PATIENT
  Age: 57 Year
  Sex: Female

DRUGS (4)
  1. MABTHERA [Suspect]
     Indication: LYMPHOMA
     Dosage: UNK
     Route: 065
     Dates: start: 20091215, end: 20100101
  2. CYCLOPHOSPHAMIDE [Suspect]
     Indication: LYMPHOMA
     Dosage: UNK
     Route: 065
     Dates: start: 20091101
  3. VINCRISTINE [Suspect]
     Indication: LYMPHOMA
     Dosage: UNK
     Route: 065
     Dates: start: 20091101
  4. PREDNISOLONE [Suspect]
     Indication: LYMPHOMA
     Dosage: UNK
     Route: 065
     Dates: start: 20091101

REACTIONS (5)
  - ARTHRALGIA [None]
  - C-REACTIVE PROTEIN INCREASED [None]
  - MYALGIA [None]
  - PYREXIA [None]
  - SERUM SICKNESS [None]
